FAERS Safety Report 6257219-7 (Version None)
Quarter: 2009Q3

REPORT INFORMATION
  Report Type: 
  Country: None (occurrence: None)
  Receive Date: 20090706
  Receipt Date: 20090701
  Transmission Date: 20100115
  Serious: Yes (Death, Other)
  Sender: FDA-Public Use
  Company Number: US-AMGEN-US345837

PATIENT
  Sex: Male
  Weight: 150 kg

DRUGS (8)
  1. NPLATE [Suspect]
     Indication: IDIOPATHIC THROMBOCYTOPENIC PURPURA
     Route: 058
     Dates: start: 20081031, end: 20090423
  2. CROMOLYN SODIUM [Concomitant]
     Dates: start: 20090403, end: 20090423
  3. GLEEVEC [Concomitant]
     Dates: start: 20090403, end: 20090423
  4. ZOLOFT [Concomitant]
     Dates: start: 20090224, end: 20090423
  5. PREDNISONE [Concomitant]
     Dates: start: 20090217, end: 20090423
  6. ZOCOR [Concomitant]
     Dates: start: 20090203, end: 20090423
  7. COREG [Concomitant]
     Dates: start: 20080805, end: 20090423
  8. CLARITIN [Concomitant]
     Dates: start: 20080805, end: 20090423

REACTIONS (2)
  - MASTOCYTOSIS [None]
  - SUDDEN CARDIAC DEATH [None]
